FAERS Safety Report 12250280 (Version 1)
Quarter: 2016Q2

REPORT INFORMATION
  Report Type: Spontaneous
  Country: JP (occurrence: JP)
  Receive Date: 20160408
  Receipt Date: 20160408
  Transmission Date: 20160815
  Serious: Yes (Death, Other)
  Sender: FDA-Public Use
  Company Number: JP-ABBVIE-16P-087-1600909-00

PATIENT
  Age: 82 Year
  Sex: Male

DRUGS (1)
  1. LEUPLIN SR FOR INJECTION KIT [Suspect]
     Active Substance: LEUPROLIDE ACETATE
     Indication: PROSTATE CANCER
     Dosage: 11.25 MG, Q3MONTHS
     Route: 058

REACTIONS (2)
  - Bile duct cancer [Fatal]
  - Prostate cancer [Fatal]
